FAERS Safety Report 8418211-7 (Version None)
Quarter: 2012Q2

REPORT INFORMATION
  Report Type: 
  Country: None (occurrence: None)
  Receive Date: 20120531
  Receipt Date: 20120515
  Transmission Date: 20120825
  Serious: Yes (Life-Threatening, Other)
  Sender: FDA-Public Use
  Company Number: CETI20120001

PATIENT
  Age: 63 Year
  Sex: Male

DRUGS (1)
  1. CETIRIZINE HCL [Suspect]
     Indication: PRURITUS
     Dosage: UNK

REACTIONS (5)
  - NEPHRITIS ALLERGIC [None]
  - THIRST [None]
  - NOCTURIA [None]
  - LETHARGY [None]
  - RENAL FAILURE ACUTE [None]
